FAERS Safety Report 18345966 (Version 3)
Quarter: 2021Q1

REPORT INFORMATION
  Report Type: Report from Study
  Country: None (occurrence: US)
  Receive Date: 20201005
  Receipt Date: 20210327
  Transmission Date: 20210419
  Serious: Yes (Hospitalization)
  Sender: FDA-Public Use
  Company Number: US-ABBVIE-20K-163-3593235-00

PATIENT
  Age: 70 Year
  Sex: Male

DRUGS (4)
  1. IMBRUVICA [Suspect]
     Active Substance: IBRUTINIB
     Indication: CHRONIC LYMPHOCYTIC LEUKAEMIA
     Route: 048
  2. COVID?19 VACCINE [Concomitant]
     Indication: COVID-19 IMMUNISATION
     Dosage: 1ST DOSE
     Route: 030
  3. IMBRUVICA [Suspect]
     Active Substance: IBRUTINIB
     Route: 048
  4. COVID?19 VACCINE [Concomitant]
     Dosage: 2ND DOSE
     Route: 030

REACTIONS (11)
  - Back pain [Unknown]
  - Knee operation [Recovered/Resolved]
  - Rash [Recovered/Resolved]
  - Musculoskeletal stiffness [Unknown]
  - Dry skin [Recovering/Resolving]
  - Skin irritation [Recovering/Resolving]
  - Blood pressure abnormal [Not Recovered/Not Resolved]
  - Cellulitis [Recovered/Resolved]
  - Gait disturbance [Not Recovered/Not Resolved]
  - Spinal operation [Recovering/Resolving]
  - Skin exfoliation [Recovering/Resolving]

NARRATIVE: CASE EVENT DATE: 2020
